FAERS Safety Report 5618446-2 (Version None)
Quarter: 2008Q1

REPORT INFORMATION
  Report Type: 
  Country: None (occurrence: None)
  Receive Date: 20080204
  Receipt Date: 20080120
  Transmission Date: 20080703
  Serious: Yes (Death, Hospitalization)
  Sender: FDA-Public Use
  Company Number: 2008S1001046

PATIENT
  Age: 54 Year
  Sex: Male

DRUGS (3)
  1. AZATHIOPRINE [Suspect]
     Indication: CROHN'S DISEASE
  2. PREDNISONE TAB [Suspect]
     Indication: CROHN'S DISEASE
  3. INFLIXIMAB [Suspect]
     Indication: CROHN'S DISEASE

REACTIONS (10)
  - ACUTE HEPATIC FAILURE [None]
  - ASCITES [None]
  - CONDITION AGGRAVATED [None]
  - GENERAL PHYSICAL HEALTH DETERIORATION [None]
  - HAEMODYNAMIC INSTABILITY [None]
  - HEPATIC ENCEPHALOPATHY [None]
  - HEPATIC FIBROSIS [None]
  - HEPATIC NECROSIS [None]
  - HEPATITIS B [None]
  - HEPATORENAL SYNDROME [None]
